FAERS Safety Report 25354916 (Version 2)
Quarter: 2025Q2

REPORT INFORMATION
  Report Type: Spontaneous
  Country: US (occurrence: US)
  Receive Date: 20250524
  Receipt Date: 20250531
  Transmission Date: 20250717
  Serious: No
  Sender: SANOFI AVENTIS
  Company Number: US-SA-2025SA146886

PATIENT
  Age: 57 Year
  Sex: Male

DRUGS (2)
  1. PRIFTIN [Suspect]
     Active Substance: RIFAPENTINE
     Indication: Latent tuberculosis
     Dosage: 6 DF, QW
     Route: 048
  2. PRIFTIN [Suspect]
     Active Substance: RIFAPENTINE
     Indication: Gamma interferon therapy

REACTIONS (1)
  - Off label use [Unknown]
